FAERS Safety Report 9116055 (Version 1)
Quarter: 2013Q1

REPORT INFORMATION
  Report Type: Spontaneous
  Country: MX (occurrence: MX)
  Receive Date: 20130225
  Receipt Date: 20130225
  Transmission Date: 20140127
  Serious: Yes (Hospitalization)
  Sender: FDA-Public Use
  Company Number: PHHY2012MX036160

PATIENT
  Age: 67 Year
  Sex: Female

DRUGS (6)
  1. FORADIL [Suspect]
     Indication: ASTHMA
     Dosage: 2 DF DAILY
     Dates: start: 201011
  2. FORADIL [Suspect]
     Dosage: 1 DF, UNK
     Dates: start: 2011, end: 201212
  3. MIFLONIDE [Suspect]
     Indication: ASTHMA
     Dosage: UNK
     Dates: start: 201011
  4. AEROSOL [Concomitant]
     Indication: ASTHMA
     Dosage: 2 DF DAILY
     Dates: start: 201011
  5. RHINOCORT (BUDESONIDE) [Concomitant]
     Indication: ASTHMA
     Dosage: 2 DF DAILY
     Dates: start: 201211
  6. SEREVENT [Concomitant]
     Indication: ASTHMA
     Dosage: 2 DF, UNK
     Dates: start: 201211

REACTIONS (7)
  - Movement disorder [Unknown]
  - Asthma [Unknown]
  - Chest discomfort [Not Recovered/Not Resolved]
  - Dyspnoea [Unknown]
  - Wheezing [Unknown]
  - Agitation [Unknown]
  - Malaise [Not Recovered/Not Resolved]
